FAERS Safety Report 10633532 (Version 1)
Quarter: 2014Q4

REPORT INFORMATION
  Report Type: Spontaneous
  Country: US (occurrence: None)
  Receive Date: 20141203
  Receipt Date: 20141203
  Transmission Date: 20150529
  Serious: Yes (Other)
  Sender: FDA-Public Use
  Company Number: 14MRZ-00412

PATIENT
  Age: 55 Year
  Sex: Female
  Weight: 69.4 kg

DRUGS (1)
  1. ASCLERA [Suspect]
     Active Substance: POLIDOCANOL
     Indication: PRODUCT USED FOR UNKNOWN INDICATION

REACTIONS (7)
  - Paraesthesia [None]
  - Hypersensitivity [None]
  - Hypertension [None]
  - Tinnitus [None]
  - Heart rate increased [None]
  - Palpitations [None]
  - Cardiac flutter [None]
